FAERS Safety Report 21914760 (Version 3)
Quarter: 2023Q1

REPORT INFORMATION
  Report Type: Report from Study
  Country: PR (occurrence: PR)
  Receive Date: 20230126
  Receipt Date: 20230131
  Transmission Date: 20230417
  Serious: Yes (Death, Hospitalization, Other)
  Sender: FDA-Public Use
  Company Number: PR-ABBVIE-4281686

PATIENT
  Age: 87 Year
  Sex: Female

DRUGS (2)
  1. HUMIRA [Suspect]
     Active Substance: ADALIMUMAB
     Indication: Colitis ulcerative
     Dosage: 40/0.4 MG/M 2 (MILLIGRAM(S)/SQ. METER)
     Route: 058
     Dates: start: 20130812, end: 20190507
  2. AZATHIOPRINE [Suspect]
     Active Substance: AZATHIOPRINE
     Indication: Colitis ulcerative
     Route: 048
     Dates: start: 20090217, end: 20130813

REACTIONS (2)
  - Perforation [Fatal]
  - Abdominal pain [Fatal]

NARRATIVE: CASE EVENT DATE: 20190507
